FAERS Safety Report 23751211 (Version 1)
Quarter: 2024Q2

REPORT INFORMATION
  Report Type: Spontaneous
  Country: CA (occurrence: CA)
  Receive Date: 20240417
  Receipt Date: 20240417
  Transmission Date: 20240715
  Serious: Yes (Hospitalization)
  Sender: FDA-Public Use
  Company Number: CA-STRIDES ARCOLAB LIMITED-2024SP004420

PATIENT
  Age: 39 Year
  Sex: Female

DRUGS (8)
  1. PREDNISOLONE [Suspect]
     Active Substance: PREDNISOLONE
     Indication: Acute promyelocytic leukaemia
     Dosage: 1 MILLIGRAM/KILOGRAM, QD (PER DAY) (ON DAYS 1-10)
     Route: 065
  2. TOPIRAMATE [Suspect]
     Active Substance: TOPIRAMATE
     Indication: Acute promyelocytic leukaemia
     Dosage: 50 MILLIGRAM, BID
     Route: 048
  3. URSODIOL [Suspect]
     Active Substance: URSODIOL
     Indication: Cholestasis of pregnancy
     Dosage: UNK
     Route: 065
  4. IDARUBICIN [Suspect]
     Active Substance: IDARUBICIN
     Indication: Acute promyelocytic leukaemia
     Dosage: 12 MILLIGRAM/SQ. METER QD (PER DAY) (ON DAYS 2, 4, 6, 8)
     Route: 065
  5. TRETINOIN [Suspect]
     Active Substance: TRETINOIN
     Indication: Acute promyelocytic leukaemia
     Dosage: 45 MILLIGRAM/SQ.METER QD (PER DAY) (RECEIVED ON 1-36 IN DIVIDED DOSES)
     Route: 065
  6. TRETINOIN [Suspect]
     Active Substance: TRETINOIN
     Dosage: UNK (DOSE REDUCED TO 50%)
     Route: 065
  7. ARSENIC TRIOXIDE [Suspect]
     Active Substance: ARSENIC TRIOXIDE
     Indication: Acute promyelocytic leukaemia
     Dosage: 0.15 MILLIGRAM/KILOGRAM QD (PER DAY) (ON DAYS 9-36)
     Route: 065
  8. ARSENIC TRIOXIDE [Suspect]
     Active Substance: ARSENIC TRIOXIDE
     Dosage: UNK, CYCLICAL (FOR 4 CYCLES)
     Route: 065

REACTIONS (7)
  - Febrile neutropenia [Unknown]
  - Mucosal inflammation [Unknown]
  - Photophobia [Unknown]
  - Vomiting [Unknown]
  - Headache [Unknown]
  - Maternal exposure during pregnancy [Unknown]
  - Off label use [Unknown]
